FAERS Safety Report 8311157-4 (Version None)
Quarter: 2012Q2

REPORT INFORMATION
  Report Type: 
  Country: None (occurrence: None)
  Receive Date: 20120425
  Receipt Date: 20120301
  Transmission Date: 20120825
  Serious: No
  Sender: FDA-Public Use
  Company Number: US-MYLANLABS-2012S1000783

PATIENT
  Age: 28 Year
  Sex: Female
  Weight: 61.24 kg

DRUGS (2)
  1. LORAZEPAM [Suspect]
     Indication: ANXIETY
     Route: 048
     Dates: start: 20111224
  2. LORAZEPAM [Suspect]
     Indication: MUSCLE RELAXANT THERAPY
     Route: 048
     Dates: start: 20111224

REACTIONS (6)
  - DRUG INEFFECTIVE FOR UNAPPROVED INDICATION [None]
  - ANXIETY [None]
  - DYSPHAGIA [None]
  - WEIGHT DECREASED [None]
  - CHOKING SENSATION [None]
  - DYSPNOEA [None]
